FAERS Safety Report 5572562-2 (Version None)
Quarter: 2007Q4

REPORT INFORMATION
  Report Type: 
  Country: None (occurrence: None)
  Receive Date: 20071130
  Receipt Date: 20070801
  Transmission Date: 20080405
  Serious: Yes (Disabling)
  Sender: FDA-Public Use
  Company Number: WAES 0708USA00143

PATIENT
  Age: 69 Year
  Sex: Female

DRUGS (3)
  1. FOSAMAX [Suspect]
     Dosage: PO
     Route: 048
     Dates: start: 20040101, end: 20060101
  2. ATENOLOL [Concomitant]
  3. VERAPAMIL [Concomitant]

REACTIONS (4)
  - ADVERSE EVENT [None]
  - NEPHROLITHIASIS [None]
  - OSTEONECROSIS [None]
  - SKIN CANCER [None]
